FAERS Safety Report 16405532 (Version 1)
Quarter: 2019Q2

REPORT INFORMATION
  Report Type: Report from Study
  Country: GB (occurrence: GB)
  Receive Date: 20190607
  Receipt Date: 20190607
  Transmission Date: 20190711
  Serious: Yes (Hospitalization, Other)
  Sender: FDA-Public Use
  Company Number: GB-BAXTER-2019BAX011001

PATIENT
  Age: 73 Year
  Sex: Male

DRUGS (1)
  1. DIANEAL [Suspect]
     Active Substance: CALCIUM CHLORIDE\DEXTROSE\MAGNESIUM CHLORIDE\SODIUM CHLORIDE\SODIUM LACTATE
     Indication: PERITONEAL DIALYSIS
     Route: 033

REACTIONS (8)
  - Peritoneal cloudy effluent [Unknown]
  - Hypophagia [Unknown]
  - Fluid intake reduced [Unknown]
  - Lethargy [Unknown]
  - Malaise [Unknown]
  - Confusional state [Unknown]
  - Unresponsive to stimuli [Unknown]
  - Ear infection [Unknown]

NARRATIVE: CASE EVENT DATE: 20190528
